FAERS Safety Report 9639062 (Version 1)
Quarter: 2013Q4

REPORT INFORMATION
  Report Type: Spontaneous
  Country: GB (occurrence: None)
  Receive Date: 20131018
  Receipt Date: 20131018
  Transmission Date: 20140711
  Serious: Yes (Hospitalization, Disabling)
  Sender: FDA-Public Use
  Company Number: 1950871

PATIENT
  Age: 66 Year
  Sex: Female
  Weight: 69 kg

DRUGS (11)
  1. CYTARABINE [Suspect]
     Indication: ACUTE MYELOID LEUKAEMIA
     Dates: start: 20130902, end: 20130906
  2. DAUNORUBICIN [Concomitant]
  3. FLUTICASONE PROPIONATE W/ SALMETEROL XINAFOATE [Concomitant]
  4. TIOTROPIUM [Concomitant]
  5. TINZAPARIN [Concomitant]
  6. NUTRIENTS NOS [Concomitant]
  7. NICOTINAM W/ PYRIDOXI. HCL/RIBOFL./THIAM [Concomitant]
  8. THIAMINE [Concomitant]
  9. METOCLOPRAMIDE [Concomitant]
  10. SODIUM ACID PHOSPHATE [Concomitant]
  11. LEVOFLOXACIN [Concomitant]

REACTIONS (2)
  - Neurotoxicity [None]
  - Nervous system disorder [None]
